FAERS Safety Report 8918906 (Version 1)
Quarter: 2012Q4

REPORT INFORMATION
  Report Type: 
  Country: AU (occurrence: AU)
  Receive Date: 20121121
  Receipt Date: 20121121
  Transmission Date: 20130627
  Serious: Yes (Other)
  Sender: FDA-Public Use
  Company Number: AU-PFIZER INC-2012288765

PATIENT
  Age: 48 Year
  Sex: Female

DRUGS (2)
  1. ZOLOFT [Suspect]
     Indication: ANXIETY
     Dosage: 25 mg, UNK
  2. ZOLOFT [Suspect]
     Indication: DEPRESSION
     Dosage: 50 mg, UNK

REACTIONS (5)
  - Mental impairment [Unknown]
  - Ear congestion [Unknown]
  - Fatigue [Unknown]
  - Feeling abnormal [Unknown]
  - Activities of daily living impaired [Unknown]
